FAERS Safety Report 17128581 (Version 1)
Quarter: 2019Q4

REPORT INFORMATION
  Report Type: Spontaneous
  Country: US (occurrence: US)
  Receive Date: 20191115
  Receipt Date: 20191115
  Transmission Date: 20200122
  Serious: Yes (Death)
  Sender: FDA-Public Use
  Company Number: None

PATIENT
  Sex: Female

DRUGS (6)
  1. RANITIDINE. [Concomitant]
     Active Substance: RANITIDINE
  2. MULTIVITAMIN [Concomitant]
     Active Substance: VITAMINS
  3. VENOFER [Suspect]
     Active Substance: IRON SUCROSE
     Indication: IRON DEFICIENCY ANAEMIA
     Route: 042
     Dates: start: 201703, end: 201704
  4. CHLORHEX GLU SOLUTION [Concomitant]
  5. CALCIUM [Concomitant]
     Active Substance: CALCIUM
  6. ONDANSETRON 4MG [Suspect]
     Active Substance: ONDANSETRON
     Route: 048
     Dates: start: 201909

REACTIONS (1)
  - Death [None]

NARRATIVE: CASE EVENT DATE: 2019
